FAERS Safety Report 13992236 (Version 1)
Quarter: 2017Q3

REPORT INFORMATION
  Report Type: Spontaneous
  Country: US (occurrence: US)
  Receive Date: 20170920
  Receipt Date: 20170920
  Transmission Date: 20171128
  Serious: Yes (Other)
  Sender: FDA-Public Use
  Company Number: US-JNJFOC-20170812812

PATIENT
  Age: 33 Year
  Sex: Male

DRUGS (1)
  1. RISPERDAL [Suspect]
     Active Substance: RISPERIDONE
     Indication: PRODUCT USED FOR UNKNOWN INDICATION
     Route: 048
     Dates: start: 20150101, end: 20161211

REACTIONS (10)
  - Chest pain [Not Recovered/Not Resolved]
  - Micturition disorder [Not Recovered/Not Resolved]
  - Muscular weakness [Not Recovered/Not Resolved]
  - Seizure [Not Recovered/Not Resolved]
  - Loss of employment [Unknown]
  - Vision blurred [Not Recovered/Not Resolved]
  - Treatment noncompliance [Unknown]
  - Incorrect dose administered [Unknown]
  - Confusional state [Not Recovered/Not Resolved]
  - Cardiac disorder [Not Recovered/Not Resolved]

NARRATIVE: CASE EVENT DATE: 20150101
